FAERS Safety Report 13862895 (Version 3)
Quarter: 2021Q4

REPORT INFORMATION
  Report Type: Spontaneous
  Country: CA (occurrence: CA)
  Receive Date: 20170814
  Receipt Date: 20211119
  Transmission Date: 20220303
  Serious: Yes (Other)
  Sender: FDA-Public Use
  Company Number: CA-009507513-1708CAN005458

PATIENT
  Age: 64 Year
  Sex: Male
  Weight: 100 kg

DRUGS (14)
  1. CUBICIN [Suspect]
     Active Substance: DAPTOMYCIN
     Indication: Enterococcal infection
     Dosage: 800 MG, 1 EVERY 1 (DAYS)
     Route: 042
     Dates: start: 20170105, end: 20170302
  2. CUBICIN [Suspect]
     Active Substance: DAPTOMYCIN
     Indication: Abdominal abscess
  3. FENOFIBRATE [Concomitant]
     Active Substance: FENOFIBRATE
  4. HEPARIN SODIUM [Concomitant]
     Active Substance: HEPARIN SODIUM
     Dosage: DOSAGE FORM: SOLUTION INTRAVENOUS
  5. CILASTATIN SODIUM\IMIPENEM [Concomitant]
     Active Substance: CILASTATIN SODIUM\IMIPENEM
  6. LOPERAMIDE [Concomitant]
     Active Substance: LOPERAMIDE
  7. MEROPENEM [Concomitant]
     Active Substance: MEROPENEM
  8. METOPROLOL [Concomitant]
     Active Substance: METOPROLOL
  9. METRONIDAZOLE [Concomitant]
     Active Substance: METRONIDAZOLE
  10. MIRTAZAPINE [Concomitant]
     Active Substance: MIRTAZAPINE
  11. PANTOPRAZOLE [Concomitant]
     Active Substance: PANTOPRAZOLE
  12. SULFAMETHOXAZOLE\TRIMETHOPRIM [Concomitant]
     Active Substance: SULFAMETHOXAZOLE\TRIMETHOPRIM
  13. VENLAFAXINE HYDROCHLORIDE [Concomitant]
     Active Substance: VENLAFAXINE HYDROCHLORIDE
  14. ZOPICLONE [Concomitant]
     Active Substance: ZOPICLONE

REACTIONS (8)
  - Eosinophil count increased [Unknown]
  - Pyrexia [Recovering/Resolving]
  - Alveolar lung disease [Recovering/Resolving]
  - Lung consolidation [Recovering/Resolving]
  - Pneumonia [Recovering/Resolving]
  - Eosinophilic pneumonia [Recovering/Resolving]
  - Organising pneumonia [Recovering/Resolving]
  - Blood creatine phosphokinase increased [Recovering/Resolving]

NARRATIVE: CASE EVENT DATE: 20170125
